FAERS Safety Report 6563706-4 (Version None)
Quarter: 2010Q1

REPORT INFORMATION
  Report Type: 
  Country: None (occurrence: None)
  Receive Date: 20100130
  Receipt Date: 20091229
  Transmission Date: 20100710
  Serious: No
  Sender: FDA-Public Use
  Company Number: US-ABBOTT-09P-163-0616771-00

PATIENT
  Sex: Female

DRUGS (7)
  1. HUMIRA [Suspect]
     Indication: CROHN'S DISEASE
     Dosage: DAY 1
     Dates: start: 20090904
  2. IRON [Concomitant]
     Indication: IMMUNE SYSTEM DISORDER
  3. SELENIUM [Concomitant]
     Indication: IMMUNE SYSTEM DISORDER
  4. VIT C [Concomitant]
     Indication: IMMUNE SYSTEM DISORDER
  5. M.V.I. [Concomitant]
     Indication: IMMUNE SYSTEM DISORDER
  6. FOLIC ACID [Concomitant]
     Indication: IMMUNE SYSTEM DISORDER
  7. WELCHOL [Concomitant]
     Indication: IMMUNE SYSTEM DISORDER

REACTIONS (4)
  - ABDOMINAL DISCOMFORT [None]
  - CHROMATURIA [None]
  - DYSPEPSIA [None]
  - IMMUNE SYSTEM DISORDER [None]
